FAERS Safety Report 9868041 (Version 3)
Quarter: 2014Q1

REPORT INFORMATION
  Report Type: Report from Study
  Country: US (occurrence: US)
  Receive Date: 20140204
  Receipt Date: 20140328
  Transmission Date: 20141002
  Serious: Yes (Hospitalization)
  Sender: FDA-Public Use
  Company Number: PHEH2014US002255

PATIENT
  Age: 53 Year
  Sex: Female
  Weight: 77.98 kg

DRUGS (5)
  1. GILENYA [Suspect]
     Indication: MULTIPLE SCLEROSIS
     Dosage: 0.5 MG, QD
     Route: 048
     Dates: start: 20140127
  2. SUBSYS [Concomitant]
  3. NEURONTIN [Concomitant]
  4. METHADONE [Concomitant]
  5. KLONOPIN [Concomitant]

REACTIONS (8)
  - Arthralgia [Not Recovered/Not Resolved]
  - Feeling abnormal [Not Recovered/Not Resolved]
  - Influenza like illness [Not Recovered/Not Resolved]
  - Pain [Recovering/Resolving]
  - Bone pain [Not Recovered/Not Resolved]
  - Confusional state [Unknown]
  - Groin pain [Unknown]
  - Back pain [Unknown]
